FAERS Safety Report 23948396 (Version 1)
Quarter: 2024Q2

REPORT INFORMATION
  Report Type: Spontaneous
  Country: FR (occurrence: FR)
  Receive Date: 20240607
  Receipt Date: 20240607
  Transmission Date: 20240715
  Serious: Yes (Hospitalization)
  Sender: FDA-Public Use
  Company Number: FR-CELLTRION INC.-2024FR013193

PATIENT

DRUGS (5)
  1. TRASTUZUMAB [Suspect]
     Active Substance: TRASTUZUMAB
     Indication: Invasive ductal breast carcinoma
     Dosage: EVERY 21 DAYS (GESTATION PERIOD AT TIME OF EXPOSURE: 2 {TRIMESTER})
     Route: 042
     Dates: start: 20220302, end: 20220601
  2. CYCLOPHOSPHAMIDE [Suspect]
     Active Substance: CYCLOPHOSPHAMIDE
     Indication: Invasive ductal breast carcinoma
     Dosage: EVERY 3 WEEKS (GESTATION PERIOD AT TIME OF EXPOSURE: 1 {TRIMESTER})
     Dates: start: 20211208, end: 20220119
  3. EPIRUBICIN [Concomitant]
     Active Substance: EPIRUBICIN
     Indication: Invasive ductal breast carcinoma
     Dosage: EVERY 3 WEEKS (GESTATION PERIOD AT TIME OF EXPOSURE: 1 {TRIMESTER})
     Route: 042
     Dates: start: 20211208, end: 20220119
  4. PACLITAXEL [Concomitant]
     Active Substance: PACLITAXEL
     Indication: Invasive ductal breast carcinoma
     Dosage: EVERY 1 WEEK (GESTATION PERIOD AT TIME OF EXPOSURE: 2 {TRIMESTER}))
     Route: 042
     Dates: start: 20220302, end: 20220601
  5. IBUPROFEN [Concomitant]
     Active Substance: IBUPROFEN

REACTIONS (2)
  - Abortion induced [Recovered/Resolved]
  - Maternal exposure during pregnancy [Unknown]

NARRATIVE: CASE EVENT DATE: 20220621
